FAERS Safety Report 8096298-1 (Version None)
Quarter: 2012Q1

REPORT INFORMATION
  Report Type: 
  Country: None (occurrence: None)
  Receive Date: 20120129
  Receipt Date: 20111230
  Transmission Date: 20120608
  Serious: No
  Sender: FDA-Public Use
  Company Number: US-ABBOTT-12P-163-0888838-00

PATIENT
  Age: 40 Year
  Sex: Female

DRUGS (3)
  1. URSO 250 [Concomitant]
     Indication: PRODUCT USED FOR UNKNOWN INDICATION
  2. ASACOL [Concomitant]
     Indication: PRODUCT USED FOR UNKNOWN INDICATION
  3. HUMIRA [Suspect]
     Indication: COLITIS ULCERATIVE
     Dates: start: 20111110

REACTIONS (3)
  - INJECTION SITE PAIN [None]
  - SLUGGISHNESS [None]
  - COLITIS ULCERATIVE [None]
